FAERS Safety Report 9638719 (Version 1)
Quarter: 2013Q4

REPORT INFORMATION
  Report Type: Report from Study
  Country: US (occurrence: US)
  Receive Date: 20131022
  Receipt Date: 20131022
  Transmission Date: 20140711
  Serious: Yes (Hospitalization)
  Sender: FDA-Public Use
  Company Number: US-009507513-1310USA008587

PATIENT
  Age: 48 Year
  Sex: Female
  Weight: 69 kg

DRUGS (6)
  1. VORINOSTAT [Suspect]
     Indication: ACUTE MYELOID LEUKAEMIA
     Dosage: 500 MG, TID
     Route: 048
     Dates: start: 20130826, end: 20130828
  2. VORINOSTAT [Suspect]
     Dosage: UNK
     Route: 048
     Dates: start: 20130405, end: 20130407
  3. CYTARABINE [Suspect]
     Indication: ACUTE MYELOID LEUKAEMIA
     Dosage: 750 MG/M2, QD ON DAYS 4.6
     Route: 042
     Dates: start: 20130829, end: 20130831
  4. CYTARABINE [Suspect]
     Dosage: 1500 MG/M2, QD ON DAYS 4-7
     Route: 042
     Dates: start: 20130408, end: 20130411
  5. IDARUBICIN [Suspect]
     Indication: ACUTE MYELOID LEUKAEMIA
     Dosage: 8 MG/M2, QD ON DAYS 4-5
     Route: 042
     Dates: start: 20130828, end: 20130829
  6. IDARUBICIN [Suspect]
     Dosage: 12 MG/M2, QD ON DAYS 4-6
     Route: 042
     Dates: start: 20130408, end: 20130410

REACTIONS (1)
  - Febrile neutropenia [Recovered/Resolved with Sequelae]
